FAERS Safety Report 8791145 (Version 1)
Quarter: 2012Q4

REPORT INFORMATION
  Report Type: Spontaneous
  Country: US (occurrence: None)
  Receive Date: 20120913
  Receipt Date: 20120913
  Transmission Date: 20130627
  Serious: Yes (Hospitalization, Other)
  Sender: FDA-Public Use
  Company Number: None

PATIENT
  Sex: Female
  Weight: 66.23 kg

DRUGS (1)
  1. PRADAXA [Suspect]
     Dosage: 75 MG 2 X DAY ORAL
     Route: 048
     Dates: start: 20120708, end: 20120728

REACTIONS (8)
  - Abdominal pain upper [None]
  - Nausea [None]
  - Constipation [None]
  - Hyperhidrosis [None]
  - Night sweats [None]
  - Contusion [None]
  - Asthenia [None]
  - Anuria [None]
